FAERS Safety Report 5493504-4 (Version None)
Quarter: 2007Q4

REPORT INFORMATION
  Report Type: 
  Country: None (occurrence: None)
  Receive Date: 20071023
  Receipt Date: 20071011
  Transmission Date: 20080405
  Serious: Yes (Hospitalization)
  Sender: FDA-Public Use
  Company Number: US-ELI_LILLY_AND_COMPANY-US200706005686

PATIENT
  Sex: Male

DRUGS (3)
  1. HUMULIN N [Suspect]
  2. HUMULIN 70/30 [Suspect]
     Dates: start: 20070201
  3. HUMALOG [Suspect]
     Dosage: UNK, AS NEEDED
     Dates: start: 20070201

REACTIONS (6)
  - BLOOD GLUCOSE DECREASED [None]
  - BLOOD GLUCOSE INCREASED [None]
  - FEMORAL ARTERIAL STENOSIS [None]
  - FEMORAL ARTERY OCCLUSION [None]
  - INCISION SITE INFECTION [None]
  - INTERMITTENT CLAUDICATION [None]
